FAERS Safety Report 6612028-1 (Version None)
Quarter: 2010Q1

REPORT INFORMATION
  Report Type: 
  Country: None (occurrence: None)
  Receive Date: 20100303
  Receipt Date: 20100223
  Transmission Date: 20100710
  Serious: Yes (Hospitalization)
  Sender: FDA-Public Use
  Company Number: A0845958A

PATIENT
  Age: 49 Year
  Sex: Female

DRUGS (4)
  1. LAMOTRIGINE [Suspect]
     Indication: BIPOLAR DISORDER
     Dosage: 300MG TWICE PER DAY
     Route: 048
     Dates: start: 20091201
  2. LEVOXYL [Concomitant]
  3. CYMBALTA [Concomitant]
  4. CLONAZEPAM [Concomitant]

REACTIONS (9)
  - CONTUSION [None]
  - CONVERSION DISORDER [None]
  - DEPRESSION [None]
  - ENURESIS [None]
  - FOAMING AT MOUTH [None]
  - GRAND MAL CONVULSION [None]
  - LOSS OF CONSCIOUSNESS [None]
  - SUICIDAL IDEATION [None]
  - WRONG TECHNIQUE IN DRUG USAGE PROCESS [None]
